FAERS Safety Report 5880714-7 (Version None)
Quarter: 2008Q3

REPORT INFORMATION
  Report Type: 
  Country: None (occurrence: None)
  Receive Date: 20080912
  Receipt Date: 20080608
  Transmission Date: 20090109
  Serious: No
  Sender: FDA-Public Use
  Company Number: US-ABBOTT-08P-163-0455805-00

PATIENT
  Sex: Male
  Weight: 94.432 kg

DRUGS (1)
  1. HUMIRA [Suspect]
     Indication: CROHN'S DISEASE
     Route: 058
     Dates: start: 20080522

REACTIONS (5)
  - CERUMEN IMPACTION [None]
  - DIZZINESS [None]
  - EAR PAIN [None]
  - OROPHARYNGEAL PAIN [None]
  - TINNITUS [None]
